FAERS Safety Report 23454980 (Version 1)
Quarter: 2024Q1

REPORT INFORMATION
  Report Type: Spontaneous
  Country: DE (occurrence: DE)
  Receive Date: 20240130
  Receipt Date: 20240130
  Transmission Date: 20240409
  Serious: Yes (Hospitalization)
  Sender: FDA-Public Use
  Company Number: DE-ALKEM LABORATORIES LIMITED-DE-ALKEM-2024-00671

PATIENT
  Age: 57 Year
  Sex: Female

DRUGS (5)
  1. IBUPROFEN [Suspect]
     Active Substance: IBUPROFEN
     Indication: Product used for unknown indication
     Dosage: 800 MILLIGRAM, QD (EVERY 1 DAY)
     Route: 065
     Dates: start: 20230501
  2. XELJANZ [Suspect]
     Active Substance: TOFACITINIB CITRATE
     Indication: Axial spondyloarthritis
     Dosage: 10 MILLIGRAM, QD (EVERY 1 DAY)
     Route: 065
     Dates: start: 20220106, end: 20230626
  3. CHOLECALCIFEROL [Concomitant]
     Active Substance: CHOLECALCIFEROL
     Indication: Product used for unknown indication
     Dosage: 20000 INTERNATIONAL UNIT
     Route: 065
  4. NAPROXEN [Concomitant]
     Active Substance: NAPROXEN
     Indication: Product used for unknown indication
     Dosage: 500 MILLIGRAM
     Route: 065
  5. PANTOPRAZOLE [Concomitant]
     Active Substance: PANTOPRAZOLE
     Indication: Product used for unknown indication
     Dosage: 40 MILLIGRAM
     Route: 065

REACTIONS (1)
  - Axial spondyloarthritis [Recovered/Resolved]

NARRATIVE: CASE EVENT DATE: 20230626
